FAERS Safety Report 15497486 (Version 1)
Quarter: 2018Q4

REPORT INFORMATION
  Report Type: Spontaneous
  Country: US (occurrence: US)
  Receive Date: 20181004
  Receipt Date: 20181004
  Transmission Date: 20190205
  Serious: Yes (Other)
  Sender: FDA-Public Use
  Company Number: None

PATIENT
  Age: 43 Year
  Sex: Female

DRUGS (9)
  1. QUETIAPINE. [Suspect]
     Active Substance: QUETIAPINE
  2. FOLIC ACID. [Concomitant]
     Active Substance: FOLIC ACID
  3. MULTIVITAMIN [Concomitant]
     Active Substance: VITAMINS
  4. POLYETHYLENE GLYCOL [Concomitant]
     Active Substance: POLYETHYLENE GLYCOLS
  5. BENZTROPINE. [Concomitant]
     Active Substance: BENZTROPINE
  6. METFORMIN [Concomitant]
     Active Substance: METFORMIN HYDROCHLORIDE
  7. ABILIFY MAINTENA [Concomitant]
     Active Substance: ARIPIPRAZOLE
  8. CLONAZEPAM ODT [Concomitant]
     Active Substance: CLONAZEPAM
  9. VALPROIC ACID. [Concomitant]
     Active Substance: VALPROIC ACID

REACTIONS (1)
  - Electrocardiogram QT prolonged [None]

NARRATIVE: CASE EVENT DATE: 20180706
